FAERS Safety Report 19230651 (Version 1)
Quarter: 2021Q2

REPORT INFORMATION
  Report Type: Spontaneous
  Country: US (occurrence: US)
  Receive Date: 20210507
  Receipt Date: 20210507
  Transmission Date: 20210717
  Serious: No
  Sender: FDA-Public Use
  Company Number: None

PATIENT
  Age: 69 Year
  Sex: Male

DRUGS (1)
  1. GAMUNEX?C [Suspect]
     Active Substance: HUMAN IMMUNOGLOBULIN G
     Indication: POLYMYOSITIS
     Dosage: DAILY FOR 2 DAYS
     Route: 042
     Dates: start: 20210319

REACTIONS (3)
  - Incorrect dose administered [None]
  - Recalled product administered [None]
  - Infusion related reaction [None]

NARRATIVE: CASE EVENT DATE: 20210429
